FAERS Safety Report 20037117 (Version 2)
Quarter: 2021Q4

REPORT INFORMATION
  Report Type: Spontaneous
  Country: US (occurrence: US)
  Receive Date: 20211105
  Receipt Date: 20211110
  Transmission Date: 20220303
  Serious: No
  Sender: FDA-Public Use
  Company Number: US-TEVA-2021-US-1971913

PATIENT
  Age: 70 Year
  Sex: Female

DRUGS (1)
  1. AJOVY [Suspect]
     Active Substance: FREMANEZUMAB-VFRM
     Indication: Migraine
     Dosage: STRENGTH-225MG/1.5 ML
     Route: 065
     Dates: start: 202101, end: 20211002

REACTIONS (4)
  - Therapeutic product effect incomplete [Unknown]
  - Injection site bruising [Unknown]
  - Injection site mass [Unknown]
  - Migraine [Unknown]

NARRATIVE: CASE EVENT DATE: 20210601
